FAERS Safety Report 14895498 (Version 5)
Quarter: 2020Q4

REPORT INFORMATION
  Report Type: Other
  Country: US (occurrence: US)
  Receive Date: 20180515
  Receipt Date: 20201020
  Transmission Date: 20210113
  Serious: Yes (Other)
  Sender: FDA-Public Use
  Company Number: US-ROCHE-2121531

PATIENT
  Age: 70 Year
  Sex: Female

DRUGS (27)
  1. OCREVUS [Suspect]
     Active Substance: OCRELIZUMAB
     Route: 042
     Dates: start: 201810
  2. SPIRONOLACTONE. [Concomitant]
     Active Substance: SPIRONOLACTONE
  3. DALFAMPRIDINE. [Concomitant]
     Active Substance: DALFAMPRIDINE
  4. MYRBETRIQ [Concomitant]
     Active Substance: MIRABEGRON
  5. BUPROPION. [Concomitant]
     Active Substance: BUPROPION
  6. SHINGRIX [Concomitant]
     Active Substance: RECOMBINANT VARICELLA ZOSTER VIRUS (VZV) GLYCOPROTEIN E
  7. FLUZONE [Concomitant]
     Active Substance: INFLUENZA A VIRUS A/CALIFORNIA/7/2009 X-179A (H1N1) ANTIGEN (FORMALDEHYDE INACTIVATED)\INFLUENZA A VIRUS A/VICTORIA/210/2009 X-187 (H3N2) ANTIGEN (FORMALDEHYDE INACTIVATED)\INFLUENZA B VIRUS B/BRISBANE/60/2008 ANTIGEN (FORMALDEHYDE INACTIVATED)
  8. METHYLPREDNISOLONE. [Concomitant]
     Active Substance: METHYLPREDNISOLONE
  9. AMPYRA [Concomitant]
     Active Substance: DALFAMPRIDINE
  10. GABAPENTIN. [Concomitant]
     Active Substance: GABAPENTIN
  11. CLONIDINE HCL [Concomitant]
     Active Substance: CLONIDINE HYDROCHLORIDE
  12. EPINEPHRINE. [Concomitant]
     Active Substance: EPINEPHRINE
  13. OCREVUS [Suspect]
     Active Substance: OCRELIZUMAB
     Indication: PRIMARY PROGRESSIVE MULTIPLE SCLEROSIS
     Route: 042
     Dates: start: 20170519
  14. SIMVASTATIN. [Concomitant]
     Active Substance: SIMVASTATIN
  15. CARVEDILOL. [Concomitant]
     Active Substance: CARVEDILOL
  16. ALPRAZOLAM. [Concomitant]
     Active Substance: ALPRAZOLAM
  17. PREDNISONE ACETATE [Concomitant]
     Active Substance: PREDNISONE ACETATE
  18. FUROSEMIDE. [Concomitant]
     Active Substance: FUROSEMIDE
  19. MODAFINIL. [Concomitant]
     Active Substance: MODAFINIL
  20. LIDOCAINE. [Concomitant]
     Active Substance: LIDOCAINE
  21. AMLODIPINE BESYLATE. [Concomitant]
     Active Substance: AMLODIPINE BESYLATE
  22. KETOROLAC TROMETHAMINE. [Concomitant]
     Active Substance: KETOROLAC TROMETHAMINE
  23. LISINOPRIL. [Concomitant]
     Active Substance: LISINOPRIL
  24. OCREVUS [Suspect]
     Active Substance: OCRELIZUMAB
     Route: 042
     Dates: start: 20171120
  25. LOSARTAN POTASSIUM. [Concomitant]
     Active Substance: LOSARTAN POTASSIUM
  26. HYDROMORPHONE HCL [Concomitant]
     Active Substance: HYDROMORPHONE HYDROCHLORIDE
  27. OFLOXACIN. [Concomitant]
     Active Substance: OFLOXACIN

REACTIONS (3)
  - Herpes zoster [Recovered/Resolved]
  - Pain [Not Recovered/Not Resolved]
  - Neuralgia [Not Recovered/Not Resolved]

NARRATIVE: CASE EVENT DATE: 201803
